FAERS Safety Report 7065741-9 (Version None)
Quarter: 2010Q4

REPORT INFORMATION
  Report Type: 
  Country: None (occurrence: None)
  Receive Date: 20101027
  Receipt Date: 20101025
  Transmission Date: 20110411
  Serious: Yes (Death)
  Sender: FDA-Public Use
  Company Number: CN-ROCHE-736117

PATIENT
  Sex: Male

DRUGS (2)
  1. MYCOPHENOLATE MOFETIL [Suspect]
     Indication: LIVER TRANSPLANT
     Dosage: 750 MG IN THE MORNING AND 750 MG IN THE EVENING
     Route: 048
     Dates: start: 20060501
  2. FK506 [Concomitant]
     Indication: LIVER TRANSPLANT
     Route: 048
     Dates: start: 20060501

REACTIONS (1)
  - BILIARY DILATATION [None]
